FAERS Safety Report 9415409 (Version 1)
Quarter: 2013Q3

REPORT INFORMATION
  Report Type: Spontaneous
  Country: FR (occurrence: FR)
  Receive Date: 20130723
  Receipt Date: 20130723
  Transmission Date: 20140515
  Serious: Yes (Hospitalization)
  Sender: FDA-Public Use
  Company Number: PHHY2013FR077375

PATIENT
  Age: 90 Year
  Sex: Female

DRUGS (2)
  1. LAMISIL [Suspect]
     Indication: SUPERINFECTION
     Dosage: 1 DF, QD
     Route: 048
     Dates: start: 20130516, end: 20130711
  2. KARDEGIC [Concomitant]
     Dosage: UNK UKN, UNK

REACTIONS (2)
  - Blood alkaline phosphatase increased [Not Recovered/Not Resolved]
  - Alanine aminotransferase increased [Not Recovered/Not Resolved]
